FAERS Safety Report 7233065-2 (Version None)
Quarter: 2011Q1

REPORT INFORMATION
  Report Type: 
  Country: None (occurrence: None)
  Receive Date: 20110119
  Receipt Date: 20110113
  Transmission Date: 20110831
  Serious: Yes (Hospitalization, Other)
  Sender: FDA-Public Use
  Company Number: US-ASTRAZENECA-2007UW06359

PATIENT
  Age: 18502 Day
  Sex: Female
  Weight: 68.9 kg

DRUGS (7)
  1. SEROQUEL [Suspect]
     Indication: SCHIZOPHRENIA
     Route: 048
     Dates: start: 19970101
  2. ZYPREXA [Concomitant]
     Dosage: 5MG, 10MG
     Dates: start: 19990914, end: 20060213
  3. SEROQUEL [Suspect]
     Route: 048
     Dates: start: 20030601
  4. COZAAR [Concomitant]
     Dosage: 25MG,50 MG EVERY DAY
     Route: 048
     Dates: start: 20030601
  5. METOPROLOL XL [Concomitant]
     Route: 048
     Dates: start: 20030601
  6. WELLBUTRIN [Concomitant]
     Route: 048
     Dates: start: 20030601
  7. TRAZODONE HCL [Concomitant]
     Route: 048
     Dates: start: 20030601

REACTIONS (8)
  - TENSION HEADACHE [None]
  - NON-CARDIAC CHEST PAIN [None]
  - PANCYTOPENIA [None]
  - NEUROPATHY PERIPHERAL [None]
  - HEPATITIS [None]
  - HEPATIC CIRRHOSIS [None]
  - RHEUMATOID ARTHRITIS [None]
  - TYPE 2 DIABETES MELLITUS [None]
